FAERS Safety Report 6962555-2 (Version None)
Quarter: 2010Q3

REPORT INFORMATION
  Report Type: 
  Country: None (occurrence: None)
  Receive Date: 20100902
  Receipt Date: 20100802
  Transmission Date: 20110219
  Serious: No
  Sender: FDA-Public Use
  Company Number: US-BAYER-201019152BCC

PATIENT
  Age: 83 Year
  Sex: Female
  Weight: 61 kg

DRUGS (3)
  1. ALEVE (CAPLET) [Suspect]
     Indication: ARTHRITIS
     Dosage: TOTAL DAILY DOSE: 220 MG  UNIT DOSE: 220 MG
     Route: 048
  2. SIMETHICONE [Concomitant]
     Route: 065
  3. ZYRTEC [Concomitant]
     Route: 065

REACTIONS (1)
  - ARTHRITIS [None]
